FAERS Safety Report 19395403 (Version 2)
Quarter: 2021Q3

REPORT INFORMATION
  Report Type: Report from Study
  Country: US (occurrence: US)
  Receive Date: 20210609
  Receipt Date: 20210715
  Transmission Date: 20211014
  Serious: No
  Sender: FDA-Public Use
  Company Number: US-AGIOS-2106US02836

PATIENT

DRUGS (1)
  1. TIBSOVO [Suspect]
     Active Substance: IVOSIDENIB
     Indication: GLIOBLASTOMA MULTIFORME
     Dosage: 250 MILLIGRAM, 2 TABLETS (500 MG) DAILY
     Route: 048

REACTIONS (6)
  - Drug intolerance [Unknown]
  - Fatigue [Unknown]
  - Off label use [Unknown]
  - Oropharyngeal pain [Unknown]
  - Myalgia [Unknown]
  - Pain in extremity [Unknown]
